FAERS Safety Report 13877075 (Version 3)
Quarter: 2017Q4

REPORT INFORMATION
  Report Type: Report from Study
  Country: JP (occurrence: JP)
  Receive Date: 20170817
  Receipt Date: 20171207
  Transmission Date: 20180320
  Serious: No
  Sender: FDA-Public Use
  Company Number: JP-ACTELION-A-CH2017-157887

PATIENT
  Age: 19 Year
  Sex: Female

DRUGS (5)
  1. NEUROVITAN [Concomitant]
     Active Substance: VITAMINS
  2. DEPAKENE [Concomitant]
     Active Substance: VALPROIC ACID
  3. LOPEMIN [Concomitant]
     Active Substance: LOPERAMIDE HYDROCHLORIDE
  4. BRAZAVES [Suspect]
     Active Substance: MIGLUSTAT
     Indication: NIEMANN-PICK DISEASE
     Dosage: 200 MG, TID
     Route: 048
     Dates: start: 20120712
  5. MIYA-BM [Concomitant]
     Active Substance: CLOSTRIDIUM BUTYRICUM SPORES STRAIN M-55

REACTIONS (2)
  - Diarrhoea [Recovering/Resolving]
  - Ovarian cyst [Not Recovered/Not Resolved]

NARRATIVE: CASE EVENT DATE: 20131108
